FAERS Safety Report 7788300-9 (Version None)
Quarter: 2011Q3

REPORT INFORMATION
  Report Type: 
  Country: None (occurrence: None)
  Receive Date: 20110930
  Receipt Date: 20110920
  Transmission Date: 20111222
  Serious: Yes (Hospitalization)
  Sender: FDA-Public Use
  Company Number: JP-JNJFOC-20110900912

PATIENT
  Sex: Male
  Weight: 32.6 kg

DRUGS (21)
  1. TOPIRAMATE [Suspect]
     Route: 048
     Dates: start: 20110404, end: 20110410
  2. TOPIRAMATE [Suspect]
     Route: 048
     Dates: start: 20110531, end: 20110607
  3. TOPIRAMATE [Suspect]
     Route: 048
     Dates: start: 20110502, end: 20110523
  4. TOPIRAMATE [Suspect]
     Route: 048
     Dates: start: 20110815, end: 20110830
  5. TOPIRAMATE [Suspect]
     Route: 048
     Dates: start: 20110905, end: 20110908
  6. TOPIRAMATE [Suspect]
     Route: 048
     Dates: start: 20110705, end: 20110807
  7. TOPIRAMATE [Suspect]
     Route: 048
     Dates: start: 20110831, end: 20110904
  8. TOPIRAMATE [Suspect]
     Route: 048
     Dates: start: 20110524, end: 20110530
  9. DEPAKENE [Concomitant]
     Indication: PRODUCT USED FOR UNKNOWN INDICATION
     Route: 048
  10. TOPIRAMATE [Suspect]
     Route: 048
     Dates: start: 20110411, end: 20110501
  11. TOPIRAMATE [Suspect]
     Route: 048
     Dates: start: 20110627, end: 20110704
  12. TOPIRAMATE [Suspect]
     Route: 048
     Dates: start: 20110808, end: 20110814
  13. TOPIRAMATE [Suspect]
     Route: 048
     Dates: start: 20101220, end: 20110206
  14. MYSTAN [Concomitant]
     Indication: PRODUCT USED FOR UNKNOWN INDICATION
     Route: 048
  15. EPINASTINE HYDROCHLORIDE [Concomitant]
     Indication: PRODUCT USED FOR UNKNOWN INDICATION
     Route: 048
  16. TOPIRAMATE [Suspect]
     Route: 048
     Dates: start: 20110608, end: 20110619
  17. TOPIRAMATE [Suspect]
     Route: 048
     Dates: start: 20110620, end: 20110626
  18. TOPIRAMATE [Suspect]
     Route: 048
     Dates: start: 20110221, end: 20110306
  19. TOPIRAMATE [Suspect]
     Indication: EPILEPSY
     Route: 048
     Dates: start: 20110307, end: 20110403
  20. TOPIRAMATE [Suspect]
     Route: 048
     Dates: start: 20100207, end: 20110220
  21. MEXITIL [Concomitant]
     Indication: PRODUCT USED FOR UNKNOWN INDICATION
     Route: 048

REACTIONS (1)
  - CHOREA [None]
